FAERS Safety Report 7894267-5 (Version None)
Quarter: 2011Q4

REPORT INFORMATION
  Report Type: 
  Country: None (occurrence: None)
  Receive Date: 20111104
  Receipt Date: 20110916
  Transmission Date: 20120403
  Serious: Yes (Life-Threatening, Hospitalization)
  Sender: FDA-Public Use
  Company Number: GB-ROCHE-1008333

PATIENT
  Sex: Female
  Weight: 102.11 kg

DRUGS (1)
  1. XOLAIR [Suspect]
     Indication: ASTHMA
     Route: 058
     Dates: start: 20101014

REACTIONS (6)
  - MULTI-ORGAN FAILURE [None]
  - PNEUMONIA [None]
  - QUALITY OF LIFE DECREASED [None]
  - ASTHMA [None]
  - BLOOD PRESSURE DECREASED [None]
  - DRUG INEFFECTIVE [None]
